FAERS Safety Report 12977256 (Version 1)
Quarter: 2016Q4

REPORT INFORMATION
  Report Type: Spontaneous
  Country: US (occurrence: US)
  Receive Date: 20161128
  Receipt Date: 20161128
  Transmission Date: 20170207
  Serious: No
  Sender: FDA-Public Use
  Company Number: US-JAZZ-2016-US-019187

PATIENT
  Sex: Female

DRUGS (15)
  1. DEXEDRINE [Concomitant]
     Active Substance: DEXTROAMPHETAMINE SULFATE
  2. TRAMADOL HCL [Concomitant]
     Active Substance: TRAMADOL HYDROCHLORIDE
  3. ZYRTEC [Concomitant]
     Active Substance: CETIRIZINE HYDROCHLORIDE
  4. MODAFINIL. [Concomitant]
     Active Substance: MODAFINIL
  5. MULTIVITAMINS                      /00116001/ [Concomitant]
  6. XYREM [Suspect]
     Active Substance: SODIUM OXYBATE
     Indication: NARCOLEPSY
     Dosage: 2.25 G, BID
     Route: 048
     Dates: start: 201607
  7. METAMUCIL [Concomitant]
     Active Substance: PLANTAGO SEED
  8. PINDOLOL. [Concomitant]
     Active Substance: PINDOLOL
  9. VITAMIN C [Concomitant]
     Active Substance: ASCORBIC ACID
  10. COENZYME Q10 [Concomitant]
     Active Substance: UBIDECARENONE
  11. MAGNESIUM OXIDE. [Concomitant]
     Active Substance: MAGNESIUM OXIDE
  12. BIOTIN [Concomitant]
     Active Substance: BIOTIN
  13. FISH OIL CONCENTRATE [Concomitant]
     Active Substance: FISH OIL
  14. VITAMIN B COMPLEX                  /00003501/ [Concomitant]
     Active Substance: CALCIUM PANTOTHENATE\NIACINAMIDE\PYRIDOXINE HYDROCHLORIDE\RIBOFLAVIN\THIAMINE HYDROCHLORIDE
  15. NORETHINDRONE                      /00044901/ [Concomitant]
     Active Substance: NORETHINDRONE

REACTIONS (3)
  - Insomnia [Not Recovered/Not Resolved]
  - Feeling abnormal [Unknown]
  - Incorrect dose administered [Unknown]

NARRATIVE: CASE EVENT DATE: 2016
